FAERS Safety Report 22015639 (Version 1)
Quarter: 2023Q1

REPORT INFORMATION
  Report Type: Spontaneous
  Country: US (occurrence: None)
  Receive Date: 20230216
  Receipt Date: 20230216
  Transmission Date: 20230418
  Serious: Yes (Hospitalization)
  Sender: FDA-Public Use
  Company Number: None

PATIENT
  Age: 89 Year
  Sex: Female
  Weight: 63.09 kg

DRUGS (10)
  1. SPRYCEL [Suspect]
     Active Substance: DASATINIB
     Indication: Acute lymphocytic leukaemia
     Dosage: 50MG ONCE DAILY ORAL
     Route: 048
     Dates: start: 202209, end: 202302
  2. ACYCLOVIR [Concomitant]
     Active Substance: ACYCLOVIR
  3. AMLODIPINE [Concomitant]
     Active Substance: AMLODIPINE BESYLATE
  4. CALCIUM [Concomitant]
     Active Substance: CALCIUM
  5. DOCUSATE SODIUM [Concomitant]
     Active Substance: DOCUSATE SODIUM
  6. DORZOLAMIDE [Concomitant]
     Active Substance: DORZOLAMIDE
  7. VITAMIN D3 [Concomitant]
     Active Substance: CHOLECALCIFEROL
  8. LATANOPROST [Concomitant]
     Active Substance: LATANOPROST
  9. TYLENOL [Concomitant]
     Active Substance: ACETAMINOPHEN
  10. URSODIOL [Concomitant]

REACTIONS (3)
  - Drug hypersensitivity [None]
  - Cardiac failure congestive [None]
  - Therapy cessation [None]
